FAERS Safety Report 4851141-6 (Version None)
Quarter: 2005Q4

REPORT INFORMATION
  Report Type: 
  Country: None (occurrence: None)
  Receive Date: 20051212
  Receipt Date: 20050914
  Transmission Date: 20060501
  Serious: Yes (Other)
  Sender: FDA-Public Use
  Company Number: FR-BRISTOL-MYERS SQUIBB COMPANY-13127683

PATIENT
  Age: 28 Year
  Sex: Female

DRUGS (3)
  1. ABILIFY [Suspect]
     Route: 048
     Dates: start: 20050829, end: 20050918
  2. RISPERDAL [Concomitant]
     Indication: PSYCHOTIC DISORDER
     Dates: start: 20050401, end: 20050908
  3. IMOVANE [Concomitant]
     Indication: INSOMNIA
     Dates: start: 20050804

REACTIONS (8)
  - ANOSMIA [None]
  - FALL [None]
  - HEAD INJURY [None]
  - INSOMNIA [None]
  - MALAISE [None]
  - NAUSEA [None]
  - SOMNOLENCE [None]
  - VOMITING [None]
